FAERS Safety Report 6191898-8 (Version None)
Quarter: 2009Q2

REPORT INFORMATION
  Report Type: 
  Country: None (occurrence: None)
  Receive Date: 20090515
  Receipt Date: 20090506
  Transmission Date: 20091009
  Serious: Yes (Other)
  Sender: FDA-Public Use
  Company Number: GB-TEVA-194741ISR

PATIENT
  Sex: Female

DRUGS (2)
  1. DOXAZOSIN MESILATE TABLETS,1 MG [Suspect]
     Route: 048
     Dates: start: 20090401
  2. DOXAZOSIN MESILATE TABLETS,1 MG [Suspect]
     Route: 048
     Dates: start: 20090401

REACTIONS (13)
  - BLOOD GLUCOSE DECREASED [None]
  - BODY TEMPERATURE DECREASED [None]
  - COUGH [None]
  - DYSPNOEA [None]
  - EPISTAXIS [None]
  - EYE DISORDER [None]
  - MUSCULAR WEAKNESS [None]
  - MUSCULOSKELETAL STIFFNESS [None]
  - MYALGIA [None]
  - OEDEMA PERIPHERAL [None]
  - PARAESTHESIA [None]
  - THIRST [None]
  - WHEEZING [None]
